FAERS Safety Report 9713433 (Version 2)
Quarter: 2013Q4

REPORT INFORMATION
  Report Type: Spontaneous
  Country: US (occurrence: US)
  Receive Date: 20131126
  Receipt Date: 20131220
  Transmission Date: 20140711
  Serious: Yes (Other)
  Sender: FDA-Public Use
  Company Number: US-ELI_LILLY_AND_COMPANY-US201311006984

PATIENT
  Sex: Female

DRUGS (2)
  1. HUMULIN 30% REGULAR, 70% NPH [Suspect]
     Indication: PRODUCT USED FOR UNKNOWN INDICATION
     Dosage: UNK UNK, BID
     Route: 065
  2. HUMALOG LISPRO [Suspect]
     Indication: PRODUCT USED FOR UNKNOWN INDICATION
     Dosage: UNK
     Route: 065

REACTIONS (6)
  - Lung neoplasm malignant [Unknown]
  - Blood glucose increased [Unknown]
  - Diabetic neuropathy [Unknown]
  - Hyperhidrosis [Unknown]
  - Sleep disorder [Unknown]
  - Drug dose omission [Unknown]
